FAERS Safety Report 11469297 (Version 2)
Quarter: 2015Q3

REPORT INFORMATION
  Report Type: Spontaneous
  Country: US (occurrence: US)
  Receive Date: 20150908
  Receipt Date: 20150923
  Transmission Date: 20151125
  Serious: No
  Sender: FDA-Public Use
  Company Number: US-GLAXOSMITHKLINE-US2015124504

PATIENT
  Sex: Female
  Weight: 62 kg

DRUGS (1)
  1. EQUATE NICOTINE [Suspect]
     Active Substance: NICOTINE
     Indication: SMOKING CESSATION THERAPY
     Dosage: 21 MG, UNK
     Dates: start: 20150817, end: 20150818

REACTIONS (3)
  - Swelling [Recovered/Resolved]
  - Urticaria [Unknown]
  - Erythema [Recovered/Resolved]
